FAERS Safety Report 9797093 (Version 1)
Quarter: 2014Q1

REPORT INFORMATION
  Report Type: Spontaneous
  Country: TR (occurrence: TR)
  Receive Date: 20140106
  Receipt Date: 20140106
  Transmission Date: 20141002
  Serious: Yes (Hospitalization)
  Sender: FDA-Public Use
  Company Number: PHHY2013TR152578

PATIENT
  Sex: Male
  Weight: 83 kg

DRUGS (6)
  1. DIGOXIN [Suspect]
     Dosage: UNK UKN, UNK
  2. COUMADIN//WARFARIN SODIUM [Suspect]
     Dosage: 1 DF, FOR FOUR DAYS AND 1.5 DF, FOR THREE DAYS
  3. COUMADIN//WARFARIN SODIUM [Suspect]
     Dosage: 1.5 DF, FOR FIVE DAYS
  4. BETA BLOCKING AGENTS [Concomitant]
     Indication: HYPERTENSION
  5. ASPIRIN [Concomitant]
     Indication: CORONARY ARTERY DISEASE
  6. CORASPIN [Concomitant]
     Dosage: 100 MG, QD

REACTIONS (3)
  - Haemorrhage [Unknown]
  - Cardiovascular disorder [Unknown]
  - Overdose [Unknown]
